FAERS Safety Report 18837274 (Version 1)
Quarter: 2021Q1

REPORT INFORMATION
  Report Type: Spontaneous
  Country: US (occurrence: US)
  Receive Date: 20210203
  Receipt Date: 20210203
  Transmission Date: 20210419
  Serious: No
  Sender: FDA-Public Use
  Company Number: US-ALLERGAN-2030651US

PATIENT
  Age: 50 Year
  Sex: Female

DRUGS (3)
  1. JUVEDERM VOLUMA XC [Suspect]
     Active Substance: HYALURONIC ACID\LIDOCAINE HYDROCHLORIDE
     Indication: SKIN WRINKLING
     Dosage: 1 PER SIDE
     Dates: start: 202002, end: 202002
  2. BOTOX [Suspect]
     Active Substance: ONABOTULINUMTOXINA
     Indication: SKIN WRINKLING
     Dosage: 4 UNITS, SINGLE
     Dates: start: 202002, end: 202002
  3. JUVEDERM [Suspect]
     Active Substance: HYALURONIC ACID
     Indication: SKIN WRINKLING
     Dosage: 2 SYRINGES
     Dates: start: 202002, end: 202002

REACTIONS (4)
  - Nerve injury [Unknown]
  - Facial paresis [Unknown]
  - Injection site rash [Recovering/Resolving]
  - Off label use [Unknown]
